FAERS Safety Report 6989444-1 (Version None)
Quarter: 2010Q3

REPORT INFORMATION
  Report Type: 
  Country: None (occurrence: None)
  Receive Date: 20100916
  Receipt Date: 20091216
  Transmission Date: 20110219
  Serious: Yes (Other)
  Sender: FDA-Public Use
  Company Number: US-PFIZER INC-2009277140

PATIENT
  Sex: Female
  Weight: 60.317 kg

DRUGS (7)
  1. LYRICA [Suspect]
     Indication: HERPES ZOSTER
     Dosage: 50 MG, 1X/DAY
     Dates: start: 20090504, end: 20090501
  2. LYRICA [Suspect]
     Indication: MYALGIA
     Dosage: 75 MG, 1X/DAY
     Dates: start: 20090506
  3. LYRICA [Suspect]
     Indication: DIABETIC NEUROPATHY
  4. ZOCOR [Concomitant]
     Dosage: UNK
  5. DETROL LA [Concomitant]
     Indication: RENAL DISORDER
     Dosage: UNK
  6. TUMS [Concomitant]
     Dosage: UNK
  7. TYLENOL-500 [Concomitant]
     Dosage: UNK

REACTIONS (8)
  - CONSTIPATION [None]
  - DISTURBANCE IN ATTENTION [None]
  - DIVERTICULITIS [None]
  - GASTROOESOPHAGEAL REFLUX DISEASE [None]
  - IMPAIRED DRIVING ABILITY [None]
  - MEMORY IMPAIRMENT [None]
  - OEDEMA [None]
  - PARATHYROID TUMOUR [None]
